FAERS Safety Report 12695114 (Version 1)
Quarter: 2016Q3

REPORT INFORMATION
  Report Type: Report from Study
  Country: KR (occurrence: KR)
  Receive Date: 20160829
  Receipt Date: 20160829
  Transmission Date: 20161109
  Serious: Yes (Hospitalization)
  Sender: FDA-Public Use
  Company Number: KR-DSJP-DSJ-2016-127994

PATIENT

DRUGS (12)
  1. OLMESARTAN AMLODIPINE HYDROCHLOROTHIAZIDE [Suspect]
     Active Substance: AMLODIPINE\HYDROCHLOROTHIAZIDE\OLMESARTAN
     Indication: HYPERTENSION
     Dosage: 20/5/12.5MG, QD
     Route: 048
     Dates: start: 20141230
  2. PREGREL [Concomitant]
     Indication: ANGINA UNSTABLE
     Dosage: 1 DF, QD
     Route: 048
     Dates: start: 20120403
  3. SERMION                            /00396401/ [Concomitant]
     Active Substance: NICERGOLINE
     Indication: POST CONCUSSION SYNDROME
     Dosage: 10 MG, QD
     Route: 048
     Dates: start: 20120918
  4. LEVEMIR [Concomitant]
     Active Substance: INSULIN DETEMIR
     Indication: DIABETES MELLITUS
     Dosage: 28 IU, QD
     Route: 058
     Dates: start: 20130603
  5. GLIATILIN [Concomitant]
     Active Substance: CHOLINE ALFOSCERATE
     Indication: POST CONCUSSION SYNDROME
     Dosage: 400 MG, QD
     Route: 048
     Dates: start: 20100330
  6. NEWBUTIN [Concomitant]
     Indication: POST CONCUSSION SYNDROME
     Dosage: 1 DF, QD
     Route: 048
     Dates: start: 20110322
  7. LASIX [Concomitant]
     Active Substance: FUROSEMIDE
     Indication: HYPERTENSION
     Dosage: 20 MG, QD
     Route: 048
     Dates: start: 20141230
  8. LOWGAN [Concomitant]
     Indication: HYPERTENSION
     Dosage: 20 MG, QD
     Route: 048
     Dates: start: 20141230
  9. ASPIRIN                            /00002701/ [Concomitant]
     Active Substance: ASPIRIN
     Indication: ANGINA UNSTABLE
     Dosage: 100 MG, QD
     Route: 048
     Dates: start: 20110420
  10. LIVALO [Concomitant]
     Active Substance: PITAVASTATIN CALCIUM
     Indication: DYSLIPIDAEMIA
     Dosage: 4 MG, QD
     Route: 048
     Dates: start: 20140211
  11. DIAMICRON [Concomitant]
     Active Substance: GLICLAZIDE
     Indication: DIABETES MELLITUS
     Dosage: 30 MG, QD
     Route: 048
     Dates: start: 20130311
  12. FOLIC ACID. [Concomitant]
     Active Substance: FOLIC ACID
     Indication: FOLATE DEFICIENCY
     Dosage: 1 MG, QD
     Route: 048
     Dates: start: 20130521

REACTIONS (1)
  - Melaena [Recovered/Resolved]

NARRATIVE: CASE EVENT DATE: 20150420
